FAERS Safety Report 21494085 (Version 2)
Quarter: 2022Q4

REPORT INFORMATION
  Report Type: Report from Study
  Country: JP (occurrence: JP)
  Receive Date: 20221021
  Receipt Date: 20221028
  Transmission Date: 20230113
  Serious: Yes (Hospitalization, Other)
  Sender: FDA-Public Use
  Company Number: JP-ONO-2022JP028215

PATIENT
  Age: 69 Year
  Sex: Female
  Weight: 60 kg

DRUGS (9)
  1. NIVOLUMAB [Suspect]
     Active Substance: NIVOLUMAB
     Indication: Pancreatic carcinoma
     Route: 041
     Dates: start: 20221012, end: 20221017
  2. MAGROLIMAB [Suspect]
     Active Substance: MAGROLIMAB
     Indication: Pancreatic carcinoma
     Route: 065
     Dates: start: 20221012, end: 20221017
  3. OXALIPLATIN [Suspect]
     Active Substance: OXALIPLATIN
     Indication: Pancreatic carcinoma
     Route: 065
     Dates: start: 20221012
  4. IRINOTECAN [Suspect]
     Active Substance: IRINOTECAN
     Indication: Pancreatic carcinoma
     Route: 065
     Dates: start: 20221012
  5. FLUOROURACIL [Suspect]
     Active Substance: FLUOROURACIL
     Indication: Pancreatic carcinoma
     Route: 065
     Dates: start: 20221012
  6. LEVOLEUCOVORIN CALCIUM [Suspect]
     Active Substance: LEVOLEUCOVORIN CALCIUM
     Indication: Pancreatic carcinoma
     Route: 065
     Dates: start: 20221012
  7. VONOPRAZAN FUMARATE [Concomitant]
     Active Substance: VONOPRAZAN FUMARATE
     Indication: Gastritis prophylaxis
     Dosage: 20 MG, EVERYDAY
     Route: 048
     Dates: start: 20221013
  8. DOMPERIDONE [Concomitant]
     Active Substance: DOMPERIDONE
     Indication: Nausea
     Dosage: 10 MG, Q8H
     Route: 048
     Dates: start: 20221013
  9. ROZEREM [Concomitant]
     Active Substance: RAMELTEON
     Indication: Insomnia
     Dosage: 8 MG, PRN, WHEN DIFFICULTY SLEEPING
     Route: 048
     Dates: start: 20221014

REACTIONS (1)
  - Inappropriate antidiuretic hormone secretion [Recovering/Resolving]

NARRATIVE: CASE EVENT DATE: 20221015
